FAERS Safety Report 5399909-4 (Version None)
Quarter: 2007Q3

REPORT INFORMATION
  Report Type: 
  Country: None (occurrence: None)
  Receive Date: 20070730
  Receipt Date: 20070723
  Transmission Date: 20080115
  Serious: Yes (Other)
  Sender: FDA-Public Use
  Company Number: PHEH2007US10377

PATIENT
  Age: 75 Year
  Sex: Female
  Weight: 82.993 kg

DRUGS (3)
  1. BENICAR [Concomitant]
     Dosage: 40/12.5 MG
  2. AMLODIPINE [Concomitant]
     Dosage: 5 MG, UNK
  3. TEKTURNA [Suspect]
     Dosage: 150 MG, QD
     Route: 048

REACTIONS (1)
  - ANGINA PECTORIS [None]
